FAERS Safety Report 9527263 (Version 2)
Quarter: 2014Q3

REPORT INFORMATION
  Report Type: Report from Study
  Country: US (occurrence: US)
  Receive Date: 20130917
  Receipt Date: 20140908
  Transmission Date: 20150326
  Serious: Yes (Hospitalization)
  Sender: FDA-Public Use
  Company Number: US-BIOGENIDEC-2013BI088604

PATIENT
  Sex: Male

DRUGS (1)
  1. AVONEX [Suspect]
     Active Substance: INTERFERON BETA-1A
     Indication: MULTIPLE SCLEROSIS
     Route: 030
     Dates: start: 19980814

REACTIONS (5)
  - Pyrexia [Recovered/Resolved]
  - Surgery [Unknown]
  - Anxiety [Unknown]
  - Headache [Recovered/Resolved]
  - Chills [Recovered/Resolved]
